FAERS Safety Report 9647408 (Version 1)
Quarter: 2013Q4

REPORT INFORMATION
  Report Type: Spontaneous
  Country: TR (occurrence: TR)
  Receive Date: 20131028
  Receipt Date: 20131028
  Transmission Date: 20140711
  Serious: Yes (Hospitalization, Other)
  Sender: FDA-Public Use
  Company Number: PHHY2013TR117684

PATIENT
  Age: 10 Month
  Sex: Female

DRUGS (1)
  1. LEVETIRACETAM [Suspect]
     Dosage: 300 MG/KG, PER DAY

REACTIONS (5)
  - Apathy [Recovered/Resolved]
  - Hypotonia [Unknown]
  - Hyperreflexia [Unknown]
  - Incorrect dose administered [Recovered/Resolved]
  - Accidental overdose [Unknown]
